FAERS Safety Report 18684362 (Version 5)
Quarter: 2021Q1

REPORT INFORMATION
  Report Type: Spontaneous
  Country: CA (occurrence: CA)
  Receive Date: 20201230
  Receipt Date: 20210208
  Transmission Date: 20210419
  Serious: Yes (Other)
  Sender: FDA-Public Use
  Company Number: CA-TEVA-2020-CA-1863505

PATIENT

DRUGS (5)
  1. INTELENCE [Suspect]
     Active Substance: ETRAVIRINE
     Indication: HIV INFECTION
     Dosage: ETRAVIRINE (INTELENCE, ETR);
     Route: 064
  2. EMTRICITABINE W/TENOFOVIR [Suspect]
     Active Substance: EMTRICITABINE\TENOFOVIR DISOPROXIL
     Indication: HIV INFECTION
     Route: 064
  3. RITONAVIR. [Suspect]
     Active Substance: RITONAVIR
     Indication: HIV INFECTION
     Route: 064
  4. DARUNAVIR [Suspect]
     Active Substance: DARUNAVIR
     Indication: HIV INFECTION
     Dosage: DARUNAVIR GENERIC
     Route: 064
  5. DOLUTEGRAVIR [Suspect]
     Active Substance: DOLUTEGRAVIR
     Indication: HIV INFECTION
     Route: 064

REACTIONS (8)
  - Hypoglycaemia [Unknown]
  - Foetal exposure during pregnancy [Unknown]
  - Acute respiratory distress syndrome [Unknown]
  - Hyponatraemia [Unknown]
  - Low birth weight baby [Unknown]
  - Anaemia [Unknown]
  - Cholestasis [Unknown]
  - Cerebral haemorrhage [Unknown]
